FAERS Safety Report 17194297 (Version 4)
Quarter: 2020Q1

REPORT INFORMATION
  Report Type: Report from Study
  Country: None (occurrence: NL)
  Receive Date: 20191224
  Receipt Date: 20200217
  Transmission Date: 20200409
  Serious: Yes (Hospitalization)
  Sender: FDA-Public Use
  Company Number: NL-ABBVIE-19K-114-3205506-00

PATIENT
  Age: 66 Year
  Sex: Male

DRUGS (3)
  1. DUODOPA [Suspect]
     Active Substance: CARBIDOPA\LEVODOPA
     Indication: PARKINSON^S DISEASE
     Dosage: MD: 6.0 CD: 3.3 PER HOUR ED: 1.5 16 HOURS ADMINISTRATION
     Route: 050
     Dates: start: 20150714
  2. SINEMET CR [Concomitant]
     Active Substance: CARBIDOPA\LEVODOPA
     Indication: PRODUCT USED FOR UNKNOWN INDICATION
  3. PRAMIPEXOLE. [Concomitant]
     Active Substance: PRAMIPEXOLE
     Indication: PRODUCT USED FOR UNKNOWN INDICATION

REACTIONS (8)
  - Dyskinesia [Unknown]
  - Device occlusion [Not Recovered/Not Resolved]
  - Stoma site discharge [Recovered/Resolved]
  - Gait disturbance [Not Recovered/Not Resolved]
  - Aphasia [Not Recovered/Not Resolved]
  - Fibroma [Not Recovered/Not Resolved]
  - Cerebral infarction [Recovered/Resolved with Sequelae]
  - Wrong technique in product usage process [Unknown]

NARRATIVE: CASE EVENT DATE: 201912
